FAERS Safety Report 16162745 (Version 1)
Quarter: 2019Q2

REPORT INFORMATION
  Report Type: Spontaneous
  Country: CA (occurrence: CA)
  Receive Date: 20190405
  Receipt Date: 20190405
  Transmission Date: 20190711
  Serious: Yes (Hospitalization, Other)
  Sender: FDA-Public Use
  Company Number: CA-ELI_LILLY_AND_COMPANY-CA201904002389

PATIENT
  Age: 44 Year
  Sex: Male

DRUGS (16)
  1. APO-CLOZAPINE [Suspect]
     Active Substance: CLOZAPINE
     Dosage: 350 MG, DAILY
     Route: 065
     Dates: start: 20130423
  2. APO-CLOZAPINE [Suspect]
     Active Substance: CLOZAPINE
     Indication: PRODUCT USED FOR UNKNOWN INDICATION
     Dosage: 25 MG, AT BEDTIME
     Route: 048
     Dates: start: 20130403
  3. RISPERIDONE. [Suspect]
     Active Substance: RISPERIDONE
     Indication: PRODUCT USED FOR UNKNOWN INDICATION
     Dosage: UNK UNK, UNKNOWN
     Route: 065
  4. QUETIAPINE. [Suspect]
     Active Substance: QUETIAPINE
     Indication: MAJOR DEPRESSION
     Dosage: 50 MG, QID
     Route: 065
  5. APO-QUETIAPINE [Suspect]
     Active Substance: QUETIAPINE
     Indication: PRODUCT USED FOR UNKNOWN INDICATION
     Dosage: 200 MG, EACH EVENING
     Route: 065
  6. APO-CLOZAPINE [Suspect]
     Active Substance: CLOZAPINE
     Dosage: 200 MG, EACH MORNING
     Route: 065
  7. VENLAFAXINE XR [Concomitant]
     Active Substance: VENLAFAXINE HYDROCHLORIDE
     Indication: PRODUCT USED FOR UNKNOWN INDICATION
     Dosage: 300 MG, DAILY
     Route: 065
  8. VENLAFAXINE [Concomitant]
     Active Substance: VENLAFAXINE HYDROCHLORIDE
     Indication: MAJOR DEPRESSION
     Dosage: 225 MG DAILY
     Route: 065
  9. APO-CLOZAPINE [Suspect]
     Active Substance: CLOZAPINE
     Dosage: 500 MG, DAILY
     Route: 048
     Dates: start: 20120925
  10. APO-CLOZAPINE [Suspect]
     Active Substance: CLOZAPINE
     Dosage: 400 MG, EACH EVENING
     Route: 065
  11. APO-CLOZAPINE [Suspect]
     Active Substance: CLOZAPINE
     Dosage: 400 MG, DAILY
     Route: 065
     Dates: start: 20130424
  12. APO-QUETIAPINE [Suspect]
     Active Substance: QUETIAPINE
     Dosage: 100 MG, EACH 2 HOURS AS NEEDED
     Route: 065
  13. OLANZAPINE. [Suspect]
     Active Substance: OLANZAPINE
     Indication: MAJOR DEPRESSION
     Dosage: 20 MG, DAILY
     Route: 065
  14. APO-CLOZAPINE [Suspect]
     Active Substance: CLOZAPINE
     Dosage: 400 MG, DAILY
     Route: 048
     Dates: start: 20130422
  15. APO-CLOZAPINE [Suspect]
     Active Substance: CLOZAPINE
     Dosage: 200 MG, DAILY
     Route: 048
     Dates: start: 20120925
  16. CLOZAPINE. [Suspect]
     Active Substance: CLOZAPINE
     Indication: MAJOR DEPRESSION
     Dosage: TITRATED UP TO 500 MG DAILY
     Route: 065
     Dates: start: 20120320, end: 20120827

REACTIONS (9)
  - Abdominal pain [Unknown]
  - Gastric infection [Recovered/Resolved]
  - Muscle rigidity [Recovered/Resolved]
  - Pain [Not Recovered/Not Resolved]
  - Rebound effect [Unknown]
  - Sedation [Recovered/Resolved]
  - Retching [Unknown]
  - Salivary hypersecretion [Unknown]
  - Constipation [Unknown]
